FAERS Safety Report 9853208 (Version 2)
Quarter: 2014Q1

REPORT INFORMATION
  Report Type: Spontaneous
  Country: FR (occurrence: FR)
  Receive Date: 20140129
  Receipt Date: 20140217
  Transmission Date: 20141002
  Serious: Yes (Other)
  Sender: FDA-Public Use
  Company Number: ALCN2014FR000757

PATIENT
  Sex: Female

DRUGS (1)
  1. IOPIDINE [Suspect]
     Dosage: 1 GTT, QD
     Route: 047
     Dates: start: 201312

REACTIONS (3)
  - Negative thoughts [Unknown]
  - Dyspnoea [Unknown]
  - Condition aggravated [Unknown]
